FAERS Safety Report 5775597-X (Version None)
Quarter: 2008Q2

REPORT INFORMATION
  Report Type: 
  Country: None (occurrence: None)
  Receive Date: 20080617
  Receipt Date: 20080609
  Transmission Date: 20081010
  Serious: Yes (Other)
  Sender: FDA-Public Use
  Company Number: ES-PFIZER INC-2008048922

PATIENT
  Age: 40 Year
  Sex: Male

DRUGS (1)
  1. VIAGRA [Suspect]
     Route: 048

REACTIONS (5)
  - BACK PAIN [None]
  - CHROMATURIA [None]
  - FLANK PAIN [None]
  - RENAL PAIN [None]
  - TESTICULAR PAIN [None]
